FAERS Safety Report 12255318 (Version 3)
Quarter: 2016Q3

REPORT INFORMATION
  Report Type: Spontaneous
  Country: US (occurrence: US)
  Receive Date: 20160412
  Receipt Date: 20160707
  Transmission Date: 20161109
  Serious: Yes (Hospitalization)
  Sender: FDA-Public Use
  Company Number: US-BEH-2016060861

PATIENT
  Sex: Male
  Weight: 127.1 kg

DRUGS (33)
  1. TUDORZA PRESSAIR [Concomitant]
     Active Substance: ACLIDINIUM BROMIDE
  2. PREDNISONE. [Concomitant]
     Active Substance: PREDNISONE
  3. THEOPHYLLINE [Concomitant]
     Active Substance: THEOPHYLLINE ANHYDROUS
  4. VITAMIN D [Concomitant]
     Active Substance: CHOLECALCIFEROL
  5. MUCINEX [Concomitant]
     Active Substance: GUAIFENESIN
  6. FISH OIL [Concomitant]
     Active Substance: FISH OIL
  7. ULORIC [Concomitant]
     Active Substance: FEBUXOSTAT
  8. SINGULAIR [Concomitant]
     Active Substance: MONTELUKAST SODIUM
  9. SOTALOL. [Concomitant]
     Active Substance: SOTALOL
  10. MELOXICAM. [Concomitant]
     Active Substance: MELOXICAM
  11. CYANOCOBALAMIN. [Concomitant]
     Active Substance: CYANOCOBALAMIN
  12. FUROSEMIDE. [Concomitant]
     Active Substance: FUROSEMIDE
  13. SPIRONOLACTONE. [Concomitant]
     Active Substance: SPIRONOLACTONE
  14. MULTIPLE VITAMIN [Concomitant]
     Active Substance: VITAMINS
  15. DOCUSATE [Concomitant]
     Active Substance: DOCUSATE
  16. OXYGEN. [Concomitant]
     Active Substance: OXYGEN
  17. COUMADIN [Concomitant]
     Active Substance: WARFARIN SODIUM
  18. OMEPRAZOLE. [Concomitant]
     Active Substance: OMEPRAZOLE
  19. TRAMADOL. [Concomitant]
     Active Substance: TRAMADOL
  20. CELEBREX [Concomitant]
     Active Substance: CELECOXIB
  21. FOLIC ACID. [Concomitant]
     Active Substance: FOLIC ACID
  22. FLOMAX [Concomitant]
     Active Substance: TAMSULOSIN HYDROCHLORIDE
  23. MONTELUKAST [Concomitant]
     Active Substance: MONTELUKAST SODIUM
  24. ASPIRIN. [Concomitant]
     Active Substance: ASPIRIN
  25. PROTONIX [Concomitant]
     Active Substance: PANTOPRAZOLE SODIUM
  26. ADVAIR HFA [Concomitant]
     Active Substance: FLUTICASONE PROPIONATE\SALMETEROL XINAFOATE
  27. AZOR [Concomitant]
     Active Substance: AMLODIPINE BESYLATE\OLMESARTAN MEDOXOMIL
  28. ZEMAIRA [Suspect]
     Active Substance: .ALPHA.1-PROTEINASE INHIBITOR HUMAN
     Indication: ALPHA-1 ANTI-TRYPSIN DEFICIENCY
     Route: 042
  29. ZITHROMAX [Concomitant]
     Active Substance: AZITHROMYCIN DIHYDRATE
  30. LYRICA [Concomitant]
     Active Substance: PREGABALIN
  31. CARVEDILOL. [Concomitant]
     Active Substance: CARVEDILOL
  32. LISINOPRIL. [Concomitant]
     Active Substance: LISINOPRIL
  33. RANITIDINE. [Concomitant]
     Active Substance: RANITIDINE

REACTIONS (1)
  - Unevaluable event [Unknown]
